FAERS Safety Report 6852079-5 (Version None)
Quarter: 2010Q3

REPORT INFORMATION
  Report Type: 
  Country: None (occurrence: None)
  Receive Date: 20100717
  Receipt Date: 20071218
  Transmission Date: 20110219
  Serious: Yes (Other)
  Sender: FDA-Public Use
  Company Number: US-PFIZER INC-2007093314

PATIENT
  Sex: Male

DRUGS (1)
  1. CHANTIX [Suspect]
     Indication: SMOKING CESSATION THERAPY

REACTIONS (7)
  - BALANCE DISORDER [None]
  - CONVULSION [None]
  - FEELING JITTERY [None]
  - NAUSEA [None]
  - PANIC ATTACK [None]
  - TREMOR [None]
  - VISION BLURRED [None]
